FAERS Safety Report 16774936 (Version 2)
Quarter: 2019Q3

REPORT INFORMATION
  Report Type: Report from Study
  Country: None (occurrence: US)
  Receive Date: 20190905
  Receipt Date: 20190911
  Transmission Date: 20191005
  Serious: Yes (Other)
  Sender: FDA-Public Use
  Company Number: US-ABBVIE-19K-163-2896187-00

PATIENT
  Age: 68 Year
  Sex: Female
  Weight: 77.18 kg

DRUGS (1)
  1. HUMIRA [Suspect]
     Active Substance: ADALIMUMAB
     Indication: CROHN^S DISEASE
     Route: 058
     Dates: start: 2017

REACTIONS (6)
  - Blindness [Not Recovered/Not Resolved]
  - Post procedural complication [Recovered/Resolved with Sequelae]
  - Cataract [Not Recovered/Not Resolved]
  - Calcinosis [Recovered/Resolved with Sequelae]
  - Retinal detachment [Not Recovered/Not Resolved]
  - Retinal detachment [Recovered/Resolved with Sequelae]

NARRATIVE: CASE EVENT DATE: 201804
